FAERS Safety Report 17726079 (Version 3)
Quarter: 2020Q2

REPORT INFORMATION
  Report Type: Report from Study
  Country: US (occurrence: US)
  Receive Date: 20200429
  Receipt Date: 20200527
  Transmission Date: 20200714
  Serious: Yes (Death, Other)
  Sender: FDA-Public Use
  Company Number: US-009507513-2004USA008422

PATIENT
  Age: 84 Year
  Sex: Female

DRUGS (1)
  1. NOXAFIL [Suspect]
     Active Substance: POSACONAZOLE
     Indication: LEUKAEMIA
     Dosage: UNK
     Route: 048

REACTIONS (3)
  - Adverse event [Unknown]
  - Product use in unapproved indication [Unknown]
  - Death [Fatal]

NARRATIVE: CASE EVENT DATE: 20200418
